FAERS Safety Report 22533381 (Version 2)
Quarter: 2024Q2

REPORT INFORMATION
  Report Type: Report from Study
  Country: CO (occurrence: CO)
  Receive Date: 20230608
  Receipt Date: 20240621
  Transmission Date: 20240716
  Serious: Yes (Hospitalization, Other)
  Sender: FDA-Public Use
  Company Number: CO-ABBVIE-2316220US

PATIENT
  Age: 58 Year
  Sex: Female
  Weight: 73 kg

DRUGS (2)
  1. BOTOX [Suspect]
     Active Substance: ONABOTULINUMTOXINA
     Indication: Migraine
     Dosage: TIME INTERVAL: AS NECESSARY
     Route: 030
     Dates: start: 20220331, end: 20220331
  2. ELETRIPTAN [Concomitant]
     Active Substance: ELETRIPTAN
     Indication: Product used for unknown indication
     Dosage: DOSE DESC: 1 TABLET, 1 TABLET ON MONDAY AND ANOTHER ON FRIDAY
     Route: 048
     Dates: end: 202301

REACTIONS (18)
  - Asthma [Recovering/Resolving]
  - Choking [Recovering/Resolving]
  - Drug hypersensitivity [Recovering/Resolving]
  - Eye disorder [Recovering/Resolving]
  - Pharyngeal disorder [Recovering/Resolving]
  - Renal disorder [Recovering/Resolving]
  - Dizziness [Not Recovered/Not Resolved]
  - Skin ulcer [Not Recovered/Not Resolved]
  - Eye allergy [Not Recovered/Not Resolved]
  - Purpura [Not Recovered/Not Resolved]
  - Blister [Not Recovered/Not Resolved]
  - Skin fissures [Not Recovered/Not Resolved]
  - Sinusitis [Recovering/Resolving]
  - Headache [Not Recovered/Not Resolved]
  - Oropharyngeal pain [Recovering/Resolving]
  - Urinary incontinence [Recovering/Resolving]
  - Unevaluable event [Not Recovered/Not Resolved]
  - Sleep disorder [Not Recovered/Not Resolved]

NARRATIVE: CASE EVENT DATE: 20220601
